FAERS Safety Report 7395630-1 (Version None)
Quarter: 2011Q2

REPORT INFORMATION
  Report Type: 
  Country: None (occurrence: None)
  Receive Date: 20110405
  Receipt Date: 20091208
  Transmission Date: 20111010
  Serious: Yes (Other)
  Sender: FDA-Public Use
  Company Number: PHHY2009DE67514

PATIENT
  Sex: Male

DRUGS (1)
  1. EXTAVIA [Suspect]
     Dates: start: 20091202

REACTIONS (6)
  - ACCIDENT AT WORK [None]
  - HYPOAESTHESIA [None]
  - WEIGHT INCREASED [None]
  - LIGAMENT RUPTURE [None]
  - FATIGUE [None]
  - INFLUENZA [None]
